FAERS Safety Report 7676136-9 (Version None)
Quarter: 2011Q3

REPORT INFORMATION
  Report Type: 
  Country: None (occurrence: None)
  Receive Date: 20110811
  Receipt Date: 20110801
  Transmission Date: 20111222
  Serious: Yes (Hospitalization, Other)
  Sender: FDA-Public Use
  Company Number: US-JNJFOC-20110308222

PATIENT
  Sex: Female
  Weight: 65.2 kg

DRUGS (4)
  1. INFLIXIMAB, RECOMBINANT [Suspect]
     Route: 042
     Dates: start: 20030202
  2. INFLIXIMAB, RECOMBINANT [Suspect]
     Indication: CROHN'S DISEASE
     Route: 042
     Dates: start: 20080827
  3. PREDNISONE [Concomitant]
  4. MESALAMINE [Concomitant]
     Route: 048

REACTIONS (1)
  - DEHYDRATION [None]
